FAERS Safety Report 21035654 (Version 1)
Quarter: 2022Q3

REPORT INFORMATION
  Report Type: Report from Study
  Country: US (occurrence: US)
  Receive Date: 20220701
  Receipt Date: 20220701
  Transmission Date: 20221027
  Serious: Yes (Other)
  Sender: FDA-Public Use
  Company Number: US-JAZZ-2022-US-021813

PATIENT
  Sex: Female

DRUGS (3)
  1. SOLRIAMFETOL [Suspect]
     Active Substance: SOLRIAMFETOL
     Indication: Hypersomnia
     Dosage: UNK
  2. MINOCYCLINE [Suspect]
     Active Substance: MINOCYCLINE HYDROCHLORIDE
     Indication: Product used for unknown indication
  3. IODINE [Suspect]
     Active Substance: IODINE
     Indication: Product used for unknown indication

REACTIONS (4)
  - Idiopathic intracranial hypertension [Unknown]
  - Nephrolithiasis [Unknown]
  - Depression [Unknown]
  - Drug hypersensitivity [Unknown]
